FAERS Safety Report 18032795 (Version 2)
Quarter: 2020Q3

REPORT INFORMATION
  Report Type: Spontaneous
  Country: ES (occurrence: ES)
  Receive Date: 20200716
  Receipt Date: 20200730
  Transmission Date: 20201103
  Serious: Yes (Other)
  Sender: FDA-Public Use
  Company Number: ES-PFIZER INC-2020109914

PATIENT
  Age: 66 Year
  Sex: Female
  Weight: 54 kg

DRUGS (3)
  1. METHOTREXATE SODIUM. [Suspect]
     Active Substance: METHOTREXATE SODIUM
     Indication: SPONDYLITIS
     Dosage: 7.5 MG, WEEKLY
     Dates: start: 201901
  2. SIMPONI [Suspect]
     Active Substance: GOLIMUMAB
     Indication: SPONDYLITIS
     Dosage: 50 MG (EVERY 28 DAYS)
     Route: 058
     Dates: start: 201809
  3. PREDNISONE. [Concomitant]
     Active Substance: PREDNISONE
     Indication: SPONDYLITIS
     Dosage: UNK
     Route: 065
     Dates: start: 201809

REACTIONS (15)
  - Spondylitis [Recovering/Resolving]
  - Fatigue [Unknown]
  - Bone pain [Not Recovered/Not Resolved]
  - Drug ineffective [Unknown]
  - Off label use [Unknown]
  - Urinary tract infection [Unknown]
  - Condition aggravated [Recovering/Resolving]
  - Mobility decreased [Unknown]
  - Skin lesion [Unknown]
  - Pain in extremity [Not Recovered/Not Resolved]
  - Product administration error [Unknown]
  - Product use in unapproved indication [Unknown]
  - Arthralgia [Not Recovered/Not Resolved]
  - Pain [Not Recovered/Not Resolved]
  - Myalgia [Not Recovered/Not Resolved]

NARRATIVE: CASE EVENT DATE: 201809
